FAERS Safety Report 10903858 (Version 1)
Quarter: 2015Q1

REPORT INFORMATION
  Report Type: Report from Study
  Country: ES (occurrence: ES)
  Receive Date: 20150311
  Receipt Date: 20150311
  Transmission Date: 20150721
  Serious: Yes (Other)
  Sender: FDA-Public Use
  Company Number: ES-AMGEN-ESPSL2015020973

PATIENT
  Age: 52 Year
  Sex: Male
  Weight: 59 kg

DRUGS (1)
  1. ARANESP [Suspect]
     Active Substance: DARBEPOETIN ALFA
     Indication: PRODUCT USED FOR UNKNOWN INDICATION
     Dosage: 30 MUG, EVERY 21 DAYS
     Route: 058

REACTIONS (1)
  - Serratia infection [Unknown]

NARRATIVE: CASE EVENT DATE: 201501
